FAERS Safety Report 19719307 (Version 9)
Quarter: 2022Q2

REPORT INFORMATION
  Report Type: Report from Study
  Country: CA (occurrence: CA)
  Receive Date: 20210818
  Receipt Date: 20220505
  Transmission Date: 20220721
  Serious: Yes (Hospitalization, Other)
  Sender: FDA-Public Use
  Company Number: CA-OTSUKA-2021_028499

PATIENT
  Age: 71 Year
  Sex: Male

DRUGS (5)
  1. CEDAZURIDINE\DECITABINE [Suspect]
     Active Substance: CEDAZURIDINE\DECITABINE
     Indication: Chronic myelomonocytic leukaemia
     Dosage: UNK (3 PILLS IN CYCLE 1)
     Route: 065
     Dates: start: 20210707
  2. CEDAZURIDINE\DECITABINE [Suspect]
     Active Substance: CEDAZURIDINE\DECITABINE
     Dosage: UNK (5 PILLS IN  CYCLE 2)
     Route: 065
  3. CEDAZURIDINE\DECITABINE [Suspect]
     Active Substance: CEDAZURIDINE\DECITABINE
     Dosage: UNK (4 PILLS IN  CYCLE 5)
     Route: 065
     Dates: start: 20211101
  4. CEDAZURIDINE\DECITABINE [Suspect]
     Active Substance: CEDAZURIDINE\DECITABINE
     Dosage: 4 PILLS/CYCLE
     Route: 065
     Dates: start: 20220307, end: 20220428
  5. CEDAZURIDINE\DECITABINE [Suspect]
     Active Substance: CEDAZURIDINE\DECITABINE
     Dosage: UNK

REACTIONS (18)
  - Transfusion [Recovered/Resolved]
  - Cardiac valve disease [Recovered/Resolved]
  - Cardiac valve disease [Unknown]
  - Haemoglobin abnormal [Recovering/Resolving]
  - Blood product transfusion dependent [Unknown]
  - Platelet count abnormal [Unknown]
  - General physical health deterioration [Unknown]
  - Eastern Cooperative Oncology Group performance status worsened [Unknown]
  - White blood cell disorder [Unknown]
  - Back pain [Recovering/Resolving]
  - Swelling [Unknown]
  - Peripheral swelling [Unknown]
  - Insomnia [Unknown]
  - Dyspnoea [Unknown]
  - Cough [Recovering/Resolving]
  - White blood cell count decreased [Unknown]
  - Product use issue [Unknown]
  - Therapy interrupted [Unknown]

NARRATIVE: CASE EVENT DATE: 20220217
